FAERS Safety Report 7380945-3 (Version None)
Quarter: 2011Q1

REPORT INFORMATION
  Report Type: 
  Country: None (occurrence: None)
  Receive Date: 20110329
  Receipt Date: 20110322
  Transmission Date: 20110831
  Serious: Yes (Hospitalization)
  Sender: FDA-Public Use
  Company Number: PHHO2010DE04598

PATIENT
  Sex: Female

DRUGS (4)
  1. EVEROLIMUS [Suspect]
     Indication: RENAL TRANSPLANT
     Dosage: 2 MG / DAY
     Route: 048
     Dates: start: 20090724
  2. PREDNISONE [Concomitant]
     Indication: RENAL TRANSPLANT
     Dosage: 7.5 MG / DAY
     Route: 048
  3. MYFORTIC [Suspect]
     Indication: RENAL TRANSPLANT
     Dosage: 1080 MG / DAY
     Route: 048
     Dates: start: 20090419
  4. SANDIMMUNE [Concomitant]
     Indication: RENAL TRANSPLANT
     Dosage: UNK
     Route: 048
     Dates: start: 20090419, end: 20090730

REACTIONS (5)
  - C-REACTIVE PROTEIN INCREASED [None]
  - WHITE BLOOD CELL COUNT INCREASED [None]
  - NEPHROGENIC ANAEMIA [None]
  - UPPER GASTROINTESTINAL HAEMORRHAGE [None]
  - COLITIS [None]
